FAERS Safety Report 7704119-9 (Version None)
Quarter: 2011Q3

REPORT INFORMATION
  Report Type: 
  Country: None (occurrence: None)
  Receive Date: 20110823
  Receipt Date: 20110810
  Transmission Date: 20111222
  Serious: Yes (Other)
  Sender: FDA-Public Use
  Company Number: US-CELGENEUS-163-21880-11081421

PATIENT
  Sex: Male
  Weight: 88.53 kg

DRUGS (9)
  1. FOLIC ACID [Concomitant]
     Route: 065
  2. REVLIMID [Suspect]
     Indication: MULTIPLE MYELOMA
     Dosage: 10 MILLIGRAM
     Route: 048
     Dates: start: 20110501
  3. VITAMIN B6 [Concomitant]
     Route: 065
  4. LOPRESSOR [Concomitant]
     Route: 065
  5. ASCORBIC ACID [Concomitant]
     Route: 065
  6. GLUCOVANCE [Concomitant]
     Route: 048
  7. ZITHROMAX [Concomitant]
     Route: 048
     Dates: start: 20110628
  8. ASPIRIN [Concomitant]
     Route: 048
  9. ZESTRIL [Concomitant]
     Route: 065

REACTIONS (2)
  - RECTAL HAEMORRHAGE [None]
  - EYE DISORDER [None]
